FAERS Safety Report 21957550 (Version 2)
Quarter: 2023Q1

REPORT INFORMATION
  Report Type: Spontaneous
  Country: DE (occurrence: DE)
  Receive Date: 20230206
  Receipt Date: 20230222
  Transmission Date: 20230417
  Serious: Yes (Other)
  Sender: FDA-Public Use
  Company Number: None

PATIENT
  Age: 71 Year
  Sex: Female

DRUGS (3)
  1. ACETYLCYSTEINE [Suspect]
     Active Substance: ACETYLCYSTEINE
     Indication: Dyspnoea
     Dosage: 1X1 BAG
     Dates: start: 202212
  2. ACETYLCYSTEINE [Suspect]
     Active Substance: ACETYLCYSTEINE
     Indication: Bronchitis
  3. AMOXICILLIN [Suspect]
     Active Substance: AMOXICILLIN
     Indication: Antibiotic prophylaxis
     Dates: start: 202212

REACTIONS (14)
  - Syncope [Unknown]
  - Pyrexia [Unknown]
  - Blood pressure decreased [Unknown]
  - Nausea [Unknown]
  - Pruritus [Not Recovered/Not Resolved]
  - Bronchospasm [Unknown]
  - Dyspnoea [Unknown]
  - Urticaria [Unknown]
  - Asthenia [Unknown]
  - Diarrhoea [Unknown]
  - Cardiovascular disorder [Unknown]
  - Anxiety [Unknown]
  - Skin disorder [Not Recovered/Not Resolved]
  - Pustule [Not Recovered/Not Resolved]

NARRATIVE: CASE EVENT DATE: 20230106
